FAERS Safety Report 9283996 (Version 1)
Quarter: 2013Q2

REPORT INFORMATION
  Report Type: Spontaneous
  Country: TH (occurrence: TH)
  Receive Date: 20130510
  Receipt Date: 20130510
  Transmission Date: 20140414
  Serious: Yes (Hospitalization)
  Sender: FDA-Public Use
  Company Number: PHHY2013TH046452

PATIENT
  Age: 62 Year
  Sex: Male

DRUGS (6)
  1. ISONIAZID [Suspect]
     Indication: PULMONARY TUBERCULOSIS
     Dosage: 300 MG, DAILY
  2. RIFAMPICIN [Suspect]
     Indication: PULMONARY TUBERCULOSIS
     Dosage: 450 MG, DAILY
  3. ETHAMBUTOL [Suspect]
     Indication: PULMONARY TUBERCULOSIS
     Dosage: 800 MG, DAILY
  4. AMLODIPINE [Concomitant]
     Dosage: 5 MG, DAILY
  5. METFORMIN [Concomitant]
     Dosage: 500 MG, DAILY
  6. GLIPIZIDE [Concomitant]
     Dosage: 5 MG, DAILY

REACTIONS (10)
  - Leukocytoclastic vasculitis [Recovered/Resolved]
  - Generalised erythema [Recovered/Resolved]
  - Rash maculo-papular [Recovered/Resolved]
  - Rash generalised [Recovered/Resolved]
  - Macule [Recovered/Resolved]
  - Papule [Recovered/Resolved]
  - Skin lesion [Recovered/Resolved]
  - Cutaneous vasculitis [Recovered/Resolved]
  - Skin hyperpigmentation [Recovered/Resolved]
  - Cholestasis [Recovered/Resolved]
